FAERS Safety Report 10214588 (Version 1)
Quarter: 2014Q2

REPORT INFORMATION
  Report Type: Spontaneous
  Country: ES (occurrence: ES)
  Receive Date: 20140603
  Receipt Date: 20140603
  Transmission Date: 20141212
  Serious: Yes (Other)
  Sender: FDA-Public Use
  Company Number: ES-BRISTOL-MYERS SQUIBB COMPANY-20844031

PATIENT
  Age: 60 Year
  Sex: Female

DRUGS (1)
  1. FORXIGA [Suspect]
     Indication: DIABETES MELLITUS

REACTIONS (2)
  - Cystitis haemorrhagic [Recovered/Resolved]
  - Weight decreased [Unknown]
